FAERS Safety Report 14487732 (Version 5)
Quarter: 2019Q1

REPORT INFORMATION
  Report Type: Spontaneous
  Country: DE (occurrence: DE)
  Receive Date: 20180205
  Receipt Date: 20190104
  Transmission Date: 20190417
  Serious: Yes (Hospitalization, Disabling)
  Sender: FDA-Public Use
  Company Number: PHHY2018DE014091

PATIENT
  Age: 56 Year
  Sex: Female
  Weight: 51 kg

DRUGS (1)
  1. CLINDAMYCIN 1A PHARMA [Suspect]
     Active Substance: CLINDAMYCIN HYDROCHLORIDE
     Indication: TOOTH ABSCESS
     Dosage: 300 MG, Q8H (3 DF, QD)
     Route: 048
     Dates: start: 20171120, end: 20171124

REACTIONS (7)
  - Headache [Not Recovered/Not Resolved]
  - General physical health deterioration [Not Recovered/Not Resolved]
  - Vomiting [Unknown]
  - Pseudomembranous colitis [Recovering/Resolving]
  - Pyrexia [Not Recovered/Not Resolved]
  - Diarrhoea [Recovering/Resolving]
  - Apathy [Unknown]

NARRATIVE: CASE EVENT DATE: 201712
